FAERS Safety Report 18212826 (Version 2)
Quarter: 2020Q3

REPORT INFORMATION
  Report Type: Spontaneous
  Country: JP (occurrence: JP)
  Receive Date: 20200831
  Receipt Date: 20200903
  Transmission Date: 20201103
  Serious: Yes (Other)
  Sender: FDA-Public Use
  Company Number: JP-009507513-2008JPN002125J

PATIENT
  Age: 84 Year
  Sex: Male

DRUGS (2)
  1. VASOLAN [Concomitant]
     Dosage: UNK
     Route: 065
  2. KEYTRUDA [Suspect]
     Active Substance: PEMBROLIZUMAB
     Indication: HEAD AND NECK CANCER
     Dosage: 200 MILLIGRAM, Q3W
     Route: 041
     Dates: start: 20200622

REACTIONS (3)
  - Osteomyelitis [Not Recovered/Not Resolved]
  - Erythema [Unknown]
  - Pain in extremity [Unknown]

NARRATIVE: CASE EVENT DATE: 20200623
